FAERS Safety Report 18164406 (Version 1)
Quarter: 2020Q3

REPORT INFORMATION
  Report Type: Spontaneous
  Country: PL (occurrence: PL)
  Receive Date: 20200818
  Receipt Date: 20200818
  Transmission Date: 20201103
  Serious: Yes (Other)
  Sender: FDA-Public Use
  Company Number: PL-PFIZER INC-2020315884

PATIENT
  Age: 82 Year
  Sex: Male

DRUGS (3)
  1. PEMETREXED FRESENIUS KABI [PEMETREXED] [Suspect]
     Active Substance: PEMETREXED
     Dosage: UNK
  2. PEMETREXED FRESENIUS KABI [PEMETREXED] [Suspect]
     Active Substance: PEMETREXED
     Dosage: UNK
  3. CARBOPLATIN. [Suspect]
     Active Substance: CARBOPLATIN

REACTIONS (1)
  - Renal failure [Recovering/Resolving]

NARRATIVE: CASE EVENT DATE: 20180914
